FAERS Safety Report 24328981 (Version 1)
Quarter: 2024Q3

REPORT INFORMATION
  Report Type: Spontaneous
  Country: US (occurrence: None)
  Receive Date: 20240917
  Receipt Date: 20240917
  Transmission Date: 20241016
  Serious: Yes (Other)
  Sender: Public
  Company Number: None

PATIENT
  Age: 46 Year
  Sex: Female

DRUGS (1)
  1. RITUXAN [Suspect]
     Active Substance: RITUXIMAB
     Indication: Pemphigus
     Dosage: 1000 MG EVERY 6 MONTHS INTRAVENOUS DRIP
     Route: 041
     Dates: start: 20240917, end: 20240917

REACTIONS (5)
  - Cough [None]
  - Therapy interrupted [None]
  - Oropharyngeal pain [None]
  - Dysphagia [None]
  - Throat clearing [None]

NARRATIVE: CASE EVENT DATE: 20240917
